FAERS Safety Report 7308731-0 (Version None)
Quarter: 2011Q1

REPORT INFORMATION
  Report Type: 
  Country: None (occurrence: None)
  Receive Date: 20110211
  Receipt Date: 20110131
  Transmission Date: 20110831
  Serious: Yes (Disabling)
  Sender: FDA-Public Use
  Company Number: PL-1184915

PATIENT
  Sex: Male

DRUGS (1)
  1. ALCAINE [Suspect]
     Dosage: (OPHTHALMIC)
     Route: 047
     Dates: start: 20081031

REACTIONS (9)
  - VISUAL IMPAIRMENT [None]
  - CORNEAL OEDEMA [None]
  - LACRIMATION INCREASED [None]
  - CORNEAL EROSION [None]
  - EYE IRRITATION [None]
  - EYELID OEDEMA [None]
  - VISION BLURRED [None]
  - EYE PAIN [None]
  - PHOTOPHOBIA [None]
